FAERS Safety Report 7626968-8 (Version None)
Quarter: 2011Q3

REPORT INFORMATION
  Report Type: 
  Country: None (occurrence: None)
  Receive Date: 20110721
  Receipt Date: 20110712
  Transmission Date: 20111222
  Serious: Yes (Hospitalization)
  Sender: FDA-Public Use
  Company Number: BR-ASTRAZENECA-2011SE42018

PATIENT
  Age: 60 Year
  Sex: Female
  Weight: 79 kg

DRUGS (4)
  1. ATACAND HCT [Suspect]
     Dosage: 16/12.5 MGS
     Route: 048
     Dates: start: 20110701
  2. SYNTHROID [Concomitant]
     Indication: HYPOTHYROIDISM
     Route: 048
     Dates: start: 20010101
  3. ATACAND HCT [Suspect]
     Indication: HYPERTENSION
     Dosage: 16/12.5 MGS
     Route: 048
     Dates: start: 20080101, end: 20101101
  4. CANDESARTAN CILEXETIL [Suspect]
     Indication: HYPERTENSION
     Route: 048
     Dates: start: 20101101, end: 20110701

REACTIONS (8)
  - HEADACHE [None]
  - BLOOD PRESSURE INCREASED [None]
  - PROCEDURAL PAIN [None]
  - CHEST PAIN [None]
  - PNEUMOTHORAX [None]
  - PRODUCT SUBSTITUTION ISSUE [None]
  - DRUG INEFFECTIVE [None]
  - NECK PAIN [None]
